FAERS Safety Report 18575519 (Version 1)
Quarter: 2020Q4

REPORT INFORMATION
  Report Type: Spontaneous
  Country: US (occurrence: US)
  Receive Date: 20201203
  Receipt Date: 20201203
  Transmission Date: 20210114
  Serious: Yes (Other)
  Sender: FDA-Public Use
  Company Number: US-JNJFOC-20201151323

PATIENT
  Age: 70 Year
  Sex: Female

DRUGS (9)
  1. LIPITOR [Concomitant]
     Active Substance: ATORVASTATIN CALCIUM
  2. STELARA [Suspect]
     Active Substance: USTEKINUMAB
  3. METOPROLOL SUCCINATE. [Concomitant]
     Active Substance: METOPROLOL SUCCINATE
  4. TRAMADOL. [Concomitant]
     Active Substance: TRAMADOL
  5. EXEMESTANE. [Concomitant]
     Active Substance: EXEMESTANE
  6. COUMADIN [Concomitant]
     Active Substance: WARFARIN SODIUM
  7. TOPAMAX [Concomitant]
     Active Substance: TOPIRAMATE
  8. PROTONIX [Concomitant]
     Active Substance: PANTOPRAZOLE SODIUM
  9. STELARA [Suspect]
     Active Substance: USTEKINUMAB
     Indication: PSORIATIC ARTHROPATHY
     Route: 058
     Dates: start: 20181212

REACTIONS (1)
  - Psoriatic arthropathy [Not Recovered/Not Resolved]

NARRATIVE: CASE EVENT DATE: 20201125
